FAERS Safety Report 19226417 (Version 1)
Quarter: 2021Q2

REPORT INFORMATION
  Report Type: Spontaneous
  Country: US (occurrence: US)
  Receive Date: 20210506
  Receipt Date: 20210506
  Transmission Date: 20210717
  Serious: Yes (Other)
  Sender: FDA-Public Use
  Company Number: US-PFIZER INC-2021483642

PATIENT
  Age: 42 Year
  Sex: Male

DRUGS (1)
  1. SIROLIMUS. [Suspect]
     Active Substance: SIROLIMUS
     Dosage: UNK

REACTIONS (4)
  - Cellulitis [Unknown]
  - Pain [Unknown]
  - Drug ineffective [Unknown]
  - PIK3CA related overgrowth spectrum [Unknown]
